FAERS Safety Report 25370866 (Version 2)
Quarter: 2025Q4

REPORT INFORMATION
  Report Type: Spontaneous
  Country: US (occurrence: US)
  Receive Date: 20250528
  Receipt Date: 20251014
  Transmission Date: 20260117
  Serious: Yes (Other)
  Sender: MERCK SHARP & DOHME LLC
  Company Number: US-009507513-2289315

PATIENT
  Age: 77 Year
  Sex: Female

DRUGS (5)
  1. SOTATERCEPT [Suspect]
     Active Substance: SOTATERCEPT
     Indication: Pulmonary arterial hypertension
     Dosage: 0.3 MG/KG INITIAL DOSE FOLLOWED BY 0.7 MG/KG ADMINISTERED APPROXIMATELY EVERY 3 WEEKS (3 DOSES)
     Route: 065
  2. SOTATERCEPT [Suspect]
     Active Substance: SOTATERCEPT
     Dosage: 0.3 MG/KG INITIAL DOSE FOLLOWED BY 0.7 MG/KG ADMINISTERED APPROXIMATELY EVERY 3 WEEKS (3 DOSES)
     Route: 065
  3. SOTATERCEPT [Suspect]
     Active Substance: SOTATERCEPT
  4. SOTATERCEPT [Suspect]
     Active Substance: SOTATERCEPT
  5. TREPROSTINIL [Concomitant]
     Active Substance: TREPROSTINIL

REACTIONS (1)
  - Ventilation perfusion mismatch [Unknown]
